FAERS Safety Report 6282749-1 (Version None)
Quarter: 2009Q3

REPORT INFORMATION
  Report Type: 
  Country: None (occurrence: None)
  Receive Date: 20090724
  Receipt Date: 20090721
  Transmission Date: 20100115
  Serious: Yes (Hospitalization)
  Sender: FDA-Public Use
  Company Number: DE-ABBOTT-09P-062-0558176-00

PATIENT
  Sex: Female

DRUGS (2)
  1. HUMIRA [Suspect]
     Indication: PSORIATIC ARTHROPATHY
     Route: 058
     Dates: start: 20080514, end: 20090102
  2. IBUPROFEN [Concomitant]
     Indication: PAIN
     Route: 048

REACTIONS (3)
  - INFECTION [None]
  - UMBILICAL HERNIA [None]
  - URINARY TRACT INFECTION [None]
